FAERS Safety Report 7444536-8 (Version None)
Quarter: 2011Q2

REPORT INFORMATION
  Report Type: 
  Country: None (occurrence: None)
  Receive Date: 20110427
  Receipt Date: 20110427
  Transmission Date: 20111010
  Serious: Yes (Other)
  Sender: FDA-Public Use
  Company Number: None

PATIENT
  Age: 55 Year
  Sex: Male
  Weight: 97.0698 kg

DRUGS (2)
  1. FENOFIBRATE [Suspect]
     Indication: BLOOD CHOLESTEROL
     Dosage: 120 MG 1 - DAILY
     Dates: start: 20101101
  2. FENOFIBRATE [Suspect]
     Indication: BLOOD CHOLESTEROL
     Dosage: 120 MG 1 - DAILY
     Dates: start: 20110201

REACTIONS (6)
  - PHOTOPHOBIA [None]
  - PAIN IN EXTREMITY [None]
  - ASTHENIA [None]
  - MYALGIA [None]
  - HEADACHE [None]
  - ARTHRALGIA [None]
